FAERS Safety Report 4416914-2 (Version None)
Quarter: 2004Q3

REPORT INFORMATION
  Report Type: 
  Country: None (occurrence: None)
  Receive Date: 20040806
  Receipt Date: 20040730
  Transmission Date: 20050211
  Serious: Yes (Other)
  Sender: FDA-Public Use
  Company Number: 200415786US

PATIENT
  Sex: Female

DRUGS (1)
  1. ALLEGRA-D [Suspect]
     Indication: SEASONAL ALLERGY
     Dosage: DOSE: 60/120

REACTIONS (1)
  - HEPATIC CIRRHOSIS [None]
